FAERS Safety Report 9312548 (Version 1)
Quarter: 2013Q2

REPORT INFORMATION
  Report Type: Spontaneous
  Country: US (occurrence: US)
  Receive Date: 20130528
  Receipt Date: 20130528
  Transmission Date: 20140414
  Serious: Yes (Other)
  Sender: FDA-Public Use
  Company Number: US-JNJFOC-20130516455

PATIENT
  Sex: Male
  Weight: 90.72 kg

DRUGS (1)
  1. NUCYNTA [Suspect]
     Indication: BACK PAIN
     Route: 048

REACTIONS (4)
  - Nerve injury [Unknown]
  - Malaise [Unknown]
  - Vomiting [Unknown]
  - Diarrhoea [Unknown]
